FAERS Safety Report 6370957-0 (Version None)
Quarter: 2009Q3

REPORT INFORMATION
  Report Type: 
  Country: None (occurrence: None)
  Receive Date: 20090923
  Receipt Date: 20071107
  Transmission Date: 20100115
  Serious: No
  Sender: FDA-Public Use
  Company Number: US-ASTRAZENECA-2006UW23091

PATIENT
  Age: 16539 Day
  Sex: Female
  Weight: 97.5 kg

DRUGS (25)
  1. SEROQUEL [Suspect]
     Indication: BIPOLAR DISORDER
     Dosage: 25 - 600 MG
     Route: 048
     Dates: start: 20040909
  2. SEROQUEL [Suspect]
     Indication: SLEEP DISORDER
     Dosage: 25 - 600 MG
     Route: 048
     Dates: start: 20040909
  3. SEROQUEL [Suspect]
     Indication: AGITATION
     Dosage: 25 - 600 MG
     Route: 048
     Dates: start: 20040909
  4. SEROQUEL [Suspect]
     Route: 048
     Dates: start: 20040913
  5. SEROQUEL [Suspect]
     Route: 048
     Dates: start: 20040913
  6. SEROQUEL [Suspect]
     Route: 048
     Dates: start: 20040913
  7. SEROQUEL [Suspect]
     Route: 048
     Dates: start: 20040913
  8. SEROQUEL [Suspect]
     Route: 048
     Dates: start: 20040913
  9. SEROQUEL [Suspect]
     Route: 048
     Dates: start: 20040913
  10. LAMICTAL [Concomitant]
     Indication: AFFECTIVE DISORDER
     Dosage: 50 - 200 MG
     Dates: start: 20041007
  11. LAMICTAL [Concomitant]
     Dates: start: 20040101
  12. CLONAZEPAM [Concomitant]
     Indication: SLEEP DISORDER
     Dates: start: 20040101
  13. CLONAZEPAM [Concomitant]
     Dosage: THREE EVERY DAY
     Dates: start: 20060210
  14. BUPROPION HCL [Concomitant]
     Dates: start: 20040101
  15. BUPROPION HCL [Concomitant]
     Dates: start: 20060210
  16. METFORMIN HCL [Concomitant]
     Dates: start: 20060809
  17. LISINOPRIL [Concomitant]
     Dates: start: 20060809
  18. HYDROCHLOROTHIAZIDE [Concomitant]
     Dates: start: 20060419
  19. ASPIRIN [Concomitant]
     Dates: start: 20060809
  20. OMEPRAZOLE [Concomitant]
     Dates: start: 20060419
  21. IBUPROFEN [Concomitant]
     Dosage: 400 MG EVERY OTHER DAY
     Dates: start: 20060809
  22. LIPITOR [Concomitant]
     Route: 048
     Dates: start: 20060922
  23. CITALOPRAM [Concomitant]
     Dates: start: 20060210
  24. LEXAPRO [Concomitant]
     Dosage: 10 MG, 20 MG
     Dates: start: 20040517
  25. DEPAKOTE [Concomitant]
     Dosage: 250 MORNING, 500 MG EVERY NIGHT, 750 A DAY, 1000 AT NIGHT
     Dates: start: 20040517

REACTIONS (4)
  - DIABETES MELLITUS [None]
  - GLUCOSE TOLERANCE IMPAIRED [None]
  - TYPE 2 DIABETES MELLITUS [None]
  - WEIGHT INCREASED [None]
